FAERS Safety Report 19152842 (Version 1)
Quarter: 2021Q2

REPORT INFORMATION
  Report Type: Spontaneous
  Country: US (occurrence: US)
  Receive Date: 20210417
  Receipt Date: 20210417
  Transmission Date: 20210717
  Serious: Yes (Hospitalization)
  Sender: FDA-Public Use
  Company Number: None

PATIENT
  Age: 53 Year
  Sex: Male
  Weight: 57.96 kg

DRUGS (1)
  1. CISPLATIN. [Suspect]
     Active Substance: CISPLATIN
     Dates: end: 20210330

REACTIONS (10)
  - Hypertension [None]
  - Blood glucose increased [None]
  - Poor quality sleep [None]
  - White blood cell count decreased [None]
  - Pyrexia [None]
  - Heart rate increased [None]
  - Tremor [None]
  - Haemoglobin decreased [None]
  - Neutrophil count decreased [None]
  - Blood sodium decreased [None]

NARRATIVE: CASE EVENT DATE: 20210404
